FAERS Safety Report 5976396-6 (Version None)
Quarter: 2008Q4

REPORT INFORMATION
  Report Type: 
  Country: None (occurrence: None)
  Receive Date: 20081202
  Receipt Date: 20081127
  Transmission Date: 20090506
  Serious: Yes (Hospitalization, Disabling)
  Sender: FDA-Public Use
  Company Number: DE-ABBOTT-08P-062-0488047-00

PATIENT
  Sex: Female

DRUGS (2)
  1. HUMIRA [Suspect]
     Indication: PSORIATIC ARTHROPATHY
     Route: 058
     Dates: start: 20080605, end: 20080828
  2. HUMIRA [Suspect]
     Route: 058
     Dates: start: 20081113

REACTIONS (2)
  - THYROID OPERATION [None]
  - VOCAL CORD PARALYSIS [None]
